FAERS Safety Report 25808987 (Version 2)
Quarter: 2025Q3

REPORT INFORMATION
  Report Type: Spontaneous
  Country: QA (occurrence: QA)
  Receive Date: 20250916
  Receipt Date: 20250919
  Transmission Date: 20251020
  Serious: Yes (Life-Threatening, Other)
  Sender: PFIZER
  Company Number: QA-MLMSERVICE-20250905-PI635567-00166-1

PATIENT
  Age: 62 Year
  Sex: Male

DRUGS (3)
  1. GENTAMICIN SULFATE [Suspect]
     Active Substance: GENTAMICIN SULFATE
     Dosage: 80 MG, 3X/DAY (FREQ:8 H)
     Route: 042
  2. CEFTRIAXONE [Concomitant]
     Active Substance: CEFTRIAXONE
     Indication: Endocarditis
     Dosage: 2 G, 1X/DAY
     Route: 042
  3. CEFTRIAXONE [Concomitant]
     Active Substance: CEFTRIAXONE
     Indication: Streptococcal infection

REACTIONS (2)
  - Blood creatinine increased [Recovering/Resolving]
  - Pulmonary congestion [Unknown]
